FAERS Safety Report 6339145-8 (Version None)
Quarter: 2009Q3

REPORT INFORMATION
  Report Type: 
  Country: None (occurrence: None)
  Receive Date: 20090903
  Receipt Date: 20090407
  Transmission Date: 20100115
  Serious: No
  Sender: FDA-Public Use
  Company Number: US-BAYER-200917957NA

PATIENT
  Age: 57 Year
  Sex: Male
  Weight: 109 kg

DRUGS (1)
  1. ULTRAVIST 300 [Suspect]
     Indication: COMPUTERISED TOMOGRAM THORAX
     Dosage: TOTAL DAILY DOSE: 150 ML
     Route: 042
     Dates: start: 20090407, end: 20090407

REACTIONS (2)
  - COUGH [None]
  - VOMITING [None]
